FAERS Safety Report 24696359 (Version 1)
Quarter: 2024Q4

REPORT INFORMATION
  Report Type: Spontaneous
  Country: US (occurrence: US)
  Receive Date: 20241204
  Receipt Date: 20241204
  Transmission Date: 20250114
  Serious: Yes (Other)
  Sender: MALLINCKRODT
  Company Number: US-MALLINCKRODT-MNK202407265

PATIENT
  Age: 15 Year
  Sex: Female

DRUGS (16)
  1. NITRIC OXIDE [Suspect]
     Active Substance: NITRIC OXIDE
     Indication: Vascular resistance pulmonary increased
     Dosage: UNKNOWN
     Route: 055
  2. NITRIC OXIDE [Suspect]
     Active Substance: NITRIC OXIDE
     Indication: Pulmonary hypertension
  3. TADALAFIL [Concomitant]
     Active Substance: TADALAFIL
     Dosage: UNKNOWN
  4. TADALAFIL [Concomitant]
     Active Substance: TADALAFIL
     Dosage: UNKNOWN
  5. AMBRISENTAN [Concomitant]
     Active Substance: AMBRISENTAN
     Dosage: UNKNOWN
  6. AMBRISENTAN [Concomitant]
     Active Substance: AMBRISENTAN
     Dosage: UNKNOWN
  7. SELEXIPAG [Concomitant]
     Active Substance: SELEXIPAG
     Dosage: UNKNOWN
  8. SELEXIPAG [Concomitant]
     Active Substance: SELEXIPAG
     Dosage: UNKNOWN
  9. MILRINONE [Concomitant]
     Active Substance: MILRINONE
     Dosage: UNKNOWN
  10. EPOPROSTENOL [Concomitant]
     Active Substance: EPOPROSTENOL
     Dosage: UNKNOWN
     Route: 055
  11. EPOPROSTENOL [Concomitant]
     Active Substance: EPOPROSTENOL
     Dosage: UNKNOWN, LOW DOSE
     Route: 055
  12. EPINEPHRINE [Concomitant]
     Active Substance: EPINEPHRINE
     Dosage: UNKNOWN
  13. EPINEPHRINE [Concomitant]
     Active Substance: EPINEPHRINE
     Dosage: UNKNOWN, (LOWER DOSE)
  14. SILDENAFIL [Concomitant]
     Active Substance: SILDENAFIL
     Dosage: UNKNOWN
  15. TREPROSTINIL [Concomitant]
     Active Substance: TREPROSTINIL
     Dosage: UNKNOWN
  16. OXYGEN [Concomitant]
     Active Substance: OXYGEN
     Dosage: UNKNOWN

REACTIONS (2)
  - Pulmonary arterial pressure increased [Not Recovered/Not Resolved]
  - Product use issue [Unknown]
